FAERS Safety Report 13044851 (Version 1)
Quarter: 2016Q4

REPORT INFORMATION
  Report Type: Spontaneous
  Country: US (occurrence: US)
  Receive Date: 20161220
  Receipt Date: 20161220
  Transmission Date: 20170207
  Serious: No
  Sender: FDA-Public Use
  Company Number: US-ROCHE-1054413

PATIENT
  Age: 56 Year
  Sex: Male
  Weight: 122.58 kg

DRUGS (4)
  1. ZELBORAF [Suspect]
     Active Substance: VEMURAFENIB
     Indication: MALIGNANT MELANOMA
     Route: 065
  2. METFORMIN [Concomitant]
     Active Substance: METFORMIN HYDROCHLORIDE
     Indication: DIABETES MELLITUS
     Route: 048
     Dates: start: 20120323
  3. GP100 VACCINE [Concomitant]
  4. DIOVAN [Concomitant]
     Active Substance: VALSARTAN
     Indication: HYPERTENSION
     Route: 048

REACTIONS (5)
  - Skin exfoliation [Unknown]
  - Sunburn [Recovering/Resolving]
  - Erythema [Unknown]
  - Sunburn [Unknown]
  - Fatigue [Unknown]

NARRATIVE: CASE EVENT DATE: 20120330
